FAERS Safety Report 25951123 (Version 1)
Quarter: 2025Q4

REPORT INFORMATION
  Report Type: Spontaneous
  Country: US (occurrence: US)
  Receive Date: 20251023
  Receipt Date: 20251023
  Transmission Date: 20260118
  Serious: Yes (Other)
  Sender: BRISTOL-MYERS SQUIBB COMPANY
  Company Number: US-BRISTOL-MYERS SQUIBB COMPANY-2025-143632

PATIENT
  Age: 83 Year
  Sex: Male
  Weight: 64.86 kg

DRUGS (1)
  1. POMALYST [Suspect]
     Active Substance: POMALIDOMIDE
     Indication: Plasma cell myeloma
     Dosage: 1MG (1 CAPSULE) ORALLY ONCE DAILY FOR 21 DAYS ON, THEN 7 DAYS OFF

REACTIONS (1)
  - Clostridium difficile infection [Not Recovered/Not Resolved]
